FAERS Safety Report 5410168-6 (Version None)
Quarter: 2007Q3

REPORT INFORMATION
  Report Type: 
  Country: None (occurrence: None)
  Receive Date: 20070713
  Receipt Date: 20070410
  Transmission Date: 20080115
  Serious: No
  Sender: FDA-Public Use
  Company Number: 2007SP001295

PATIENT
  Age: 58 Year
  Sex: Male
  Weight: 78.9259 kg

DRUGS (2)
  1. LUNESTA [Suspect]
     Indication: INSOMNIA
     Dosage: 2 MG; ORAL
     Route: 048
     Dates: start: 20061201
  2. ANTIHYPERTENSIVES [Concomitant]

REACTIONS (1)
  - INSOMNIA [None]
